FAERS Safety Report 8248997-6 (Version None)
Quarter: 2012Q2

REPORT INFORMATION
  Report Type: 
  Country: None (occurrence: None)
  Receive Date: 20120402
  Receipt Date: 20120323
  Transmission Date: 20120825
  Serious: Yes (Hospitalization)
  Sender: FDA-Public Use
  Company Number: US-BIOGENIDEC-2011BI044496

PATIENT
  Age: 52 Year
  Sex: Male

DRUGS (2)
  1. AVONEX [Suspect]
     Indication: MULTIPLE SCLEROSIS
     Route: 030
     Dates: start: 19980603
  2. AMANTADINE HCL [Concomitant]

REACTIONS (10)
  - ULCER [None]
  - DECUBITUS ULCER [None]
  - GASTRIC DISORDER [None]
  - GASTRITIS HAEMORRHAGIC [None]
  - DRUG HYPERSENSITIVITY [None]
  - RHABDOMYOLYSIS [None]
  - NEUROLEPTIC MALIGNANT SYNDROME [None]
  - GASTROINTESTINAL INFECTION [None]
  - BLOOD URINE PRESENT [None]
  - URINARY TRACT INFECTION [None]
